FAERS Safety Report 15937060 (Version 1)
Quarter: 2019Q1

REPORT INFORMATION
  Report Type: Spontaneous
  Country: US (occurrence: US)
  Receive Date: 20190208
  Receipt Date: 20190208
  Transmission Date: 20190417
  Serious: Yes (Life-Threatening, Disabling)
  Sender: FDA-Public Use
  Company Number: None

PATIENT
  Age: 56 Year
  Sex: Female
  Weight: 96.75 kg

DRUGS (1)
  1. PROVENGE [Suspect]
     Active Substance: SIPULEUCEL-T
     Indication: IMMUNOSUPPRESSANT DRUG THERAPY
     Dates: start: 20180731, end: 20181228

REACTIONS (6)
  - Weight increased [None]
  - Adrenal disorder [None]
  - Hypothalamo-pituitary disorder [None]
  - Rash [None]
  - Fatigue [None]
  - Musculoskeletal stiffness [None]

NARRATIVE: CASE EVENT DATE: 20180731
